FAERS Safety Report 19085635 (Version 2)
Quarter: 2021Q2

REPORT INFORMATION
  Report Type: Spontaneous
  Country: FR (occurrence: FR)
  Receive Date: 20210401
  Receipt Date: 20210419
  Transmission Date: 20210717
  Serious: Yes (Death, Other)
  Sender: FDA-Public Use
  Company Number: FR-SUN PHARMACEUTICAL INDUSTRIES LTD-2021RR-289066

PATIENT
  Age: 58 Year
  Sex: Male

DRUGS (22)
  1. IRINOTECAN [Suspect]
     Active Substance: IRINOTECAN
     Dosage: UNK, MONOTHERAPY
     Route: 065
     Dates: start: 201802
  2. RALTITREXED [Suspect]
     Active Substance: RALTITREXED
     Indication: ADENOCARCINOMA
     Dosage: 3 MILLIGRAM/SQ. METER, 1 DOSE/3 WEEKS, 6 CYCLES
     Route: 042
     Dates: end: 201703
  3. BEVACIZUMAB. [Suspect]
     Active Substance: BEVACIZUMAB
     Indication: ADENOCARCINOMA
     Dosage: 7.5 MILLIGRAM/KILOGRAM, UNK
     Route: 042
     Dates: start: 201708
  4. 5?FLUOROURACIL [Suspect]
     Active Substance: FLUOROURACIL
     Dosage: 400 MILLIGRAM/SQ. METER, UNK
     Route: 040
  5. LEUCOVORIN. [Suspect]
     Active Substance: LEUCOVORIN
     Dosage: 400 MILLIGRAM/SQ. METER, 2/WEEK
     Route: 042
  6. 5?FLUOROURACIL [Suspect]
     Active Substance: FLUOROURACIL
     Dosage: 2400 MILLIGRAM/SQ. METER, 2/WEEK, 46 HOUR, 8 CYCLES
     Route: 042
  7. LEUCOVORIN. [Suspect]
     Active Substance: LEUCOVORIN
     Indication: ADENOCARCINOMA
     Dosage: 400 MILLIGRAM/SQ. METER, 2/WEEK, 2 HOUR, 8 CYCLES
     Route: 042
  8. RALTITREXED [Suspect]
     Active Substance: RALTITREXED
     Dosage: 3 MILLIGRAM/SQ. METER
     Route: 042
     Dates: start: 201708
  9. OXALIPLATIN. [Suspect]
     Active Substance: OXALIPLATIN
     Dosage: 300 MILLIGRAM/SQ. METER, UNK
     Route: 042
     Dates: start: 201610
  10. OXALIPLATIN. [Suspect]
     Active Substance: OXALIPLATIN
     Dosage: 100 MILLIGRAM/SQ. METER, 2/WEEK
     Route: 042
  11. OXALIPLATIN. [Suspect]
     Active Substance: OXALIPLATIN
     Dosage: 100 MILLIGRAM/SQ. METER, 1 DOSE/3 WEEKS, 6 CYCLES
     Route: 042
     Dates: end: 201703
  12. OXALIPLATIN. [Suspect]
     Active Substance: OXALIPLATIN
     Dosage: 85 MILLIGRAM/SQ. METER, UNK
     Route: 042
     Dates: start: 201708
  13. IRINOTECAN [Suspect]
     Active Substance: IRINOTECAN
     Dosage: 180 MILLIGRAM/SQ. METER, 1 DOSE/3 WEEKS, 6 CYCLES
     Route: 042
     Dates: end: 201703
  14. 5?FLUOROURACIL [Suspect]
     Active Substance: FLUOROURACIL
     Dosage: 400 MILLIGRAM/SQ. METER, 2/WEEK, 8 CYCLES
     Route: 040
  15. 5?FLUOROURACIL [Suspect]
     Active Substance: FLUOROURACIL
     Dosage: 400 MILLIGRAM/SQ. METER, UNK
     Route: 040
     Dates: start: 201610
  16. RALTITREXED [Suspect]
     Active Substance: RALTITREXED
     Dosage: 3 MILLIGRAM/SQ. METER, 1 DOSE/3 WEEKS, 6 CYCLES
     Route: 042
  17. IRINOTECAN [Suspect]
     Active Substance: IRINOTECAN
     Indication: ADENOCARCINOMA
     Dosage: 180 MILLIGRAM/SQ. METER, 2/WEEK, 8 CYCLES
     Route: 042
  18. IRINOTECAN [Suspect]
     Active Substance: IRINOTECAN
     Dosage: 200 MILLIGRAM/SQ. METER, UNK
     Dates: start: 201610
  19. OXALIPLATIN. [Suspect]
     Active Substance: OXALIPLATIN
     Dosage: 130 MILLIGRAM/SQ. METER, 1 DOSE/3 WEEKS
     Route: 042
  20. IRINOTECAN [Suspect]
     Active Substance: IRINOTECAN
     Dosage: 180 MILLIGRAM/SQ. METER, 2/WEEK
     Route: 042
  21. 5?FLUOROURACIL [Suspect]
     Active Substance: FLUOROURACIL
     Indication: ADENOCARCINOMA
     Dosage: 2400 MILLIGRAM/SQ. METER, 2/WEEK, 46 HOUR, 8 CYCLES
     Route: 042
  22. OXALIPLATIN. [Suspect]
     Active Substance: OXALIPLATIN
     Indication: ADENOCARCINOMA
     Dosage: 85 MILLIGRAM/SQ. METER, 2/WEEK, 8 CYCLES
     Route: 042

REACTIONS (5)
  - Neuropathy peripheral [Unknown]
  - Disease recurrence [Unknown]
  - Therapy partial responder [Unknown]
  - Therapeutic product effect incomplete [Unknown]
  - Disease progression [Fatal]
